FAERS Safety Report 14556594 (Version 1)
Quarter: 2018Q1

REPORT INFORMATION
  Report Type: Spontaneous
  Country: US (occurrence: US)
  Receive Date: 20180221
  Receipt Date: 20180221
  Transmission Date: 20180509
  Serious: No
  Sender: FDA-Public Use
  Company Number: US-PFIZER INC-2015222476

PATIENT
  Sex: Male
  Weight: 3.76 kg

DRUGS (1)
  1. GEODON [Suspect]
     Active Substance: ZIPRASIDONE HYDROCHLORIDE\ZIPRASIDONE MESYLATE
     Dosage: 80 MG, 2X/DAY
     Route: 064

REACTIONS (3)
  - Tremor [Recovered/Resolved]
  - Poor feeding infant [Recovered/Resolved]
  - Maternal exposure during pregnancy [Unknown]
